FAERS Safety Report 6925371-3 (Version None)
Quarter: 2010Q3

REPORT INFORMATION
  Report Type: 
  Country: None (occurrence: None)
  Receive Date: 20100816
  Receipt Date: 20100809
  Transmission Date: 20110219
  Serious: Yes (Death, Hospitalization)
  Sender: FDA-Public Use
  Company Number: CN-BAYER-201025172GPV

PATIENT
  Age: 53 Year
  Sex: Male
  Weight: 47 kg

DRUGS (9)
  1. SORAFENIB [Suspect]
     Indication: HEPATIC NEOPLASM MALIGNANT
     Route: 048
     Dates: start: 20100528, end: 20100602
  2. SORAFENIB [Suspect]
     Dosage: TOTAL DAILY DOSE: 800 MG
     Route: 048
     Dates: start: 20100109, end: 20100505
  3. SORAFENIB [Suspect]
     Route: 048
     Dates: start: 20100525, end: 20100501
  4. DOXORUBICIN HCL [Suspect]
     Indication: HEPATIC NEOPLASM MALIGNANT
  5. OMEPRAZOLE [Concomitant]
     Indication: HAEMORRHAGE PROPHYLAXIS
     Route: 042
     Dates: start: 20100511, end: 20100514
  6. TRANSMETIL [Concomitant]
     Indication: HEPATIC CIRRHOSIS
     Route: 042
     Dates: start: 20100511, end: 20100514
  7. AZ TI [Concomitant]
     Indication: HEPATIC NEOPLASM MALIGNANT
     Route: 042
     Dates: start: 20100511, end: 20100518
  8. YADANZI YOU [Concomitant]
     Indication: HEPATIC NEOPLASM MALIGNANT
     Route: 042
     Dates: start: 20100511, end: 20100518
  9. COUMPOUND GLYCYRRHIZA [Concomitant]
     Indication: HEPATITIS C
     Route: 042
     Dates: start: 20100511, end: 20100514

REACTIONS (2)
  - HEPATIC FUNCTION ABNORMAL [None]
  - PYREXIA [None]
